FAERS Safety Report 19147119 (Version 1)
Quarter: 2021Q2

REPORT INFORMATION
  Report Type: Spontaneous
  Country: CA (occurrence: CA)
  Receive Date: 20210416
  Receipt Date: 20210416
  Transmission Date: 20210717
  Serious: Yes (Hospitalization)
  Sender: FDA-Public Use
  Company Number: CA-ALLERGAN-2049912US

PATIENT
  Sex: Female

DRUGS (2)
  1. HUMIRA [Suspect]
     Active Substance: ADALIMUMAB
     Indication: ANKYLOSING SPONDYLITIS
     Dosage: 40 MG, BI?WEEKLY
     Route: 058
     Dates: start: 20180727, end: 20201120
  2. BOTOX [Suspect]
     Active Substance: ONABOTULINUMTOXINA
     Indication: PRODUCT USED FOR UNKNOWN INDICATION
     Dosage: UNK, SINGLE

REACTIONS (4)
  - Injection site infection [Not Recovered/Not Resolved]
  - Abscess [Unknown]
  - Off label use [Unknown]
  - Administration site wound [Not Recovered/Not Resolved]

NARRATIVE: CASE EVENT DATE: 2020
